FAERS Safety Report 7914042-2 (Version None)
Quarter: 2011Q4

REPORT INFORMATION
  Report Type: 
  Country: None (occurrence: None)
  Receive Date: 20111114
  Receipt Date: 20111114
  Transmission Date: 20120403
  Serious: Yes (Death, Hospitalization)
  Sender: FDA-Public Use
  Company Number: None

PATIENT
  Sex: Female
  Weight: 65.9 kg

DRUGS (2)
  1. CARBOPLATIN [Suspect]
     Dosage: 478 MG
     Dates: end: 20110928
  2. TAXOL [Suspect]
     Dosage: 300 MG
     Dates: end: 20110928

REACTIONS (23)
  - ABDOMINAL PAIN [None]
  - NEUROLOGICAL DECOMPENSATION [None]
  - ASTHENIA [None]
  - TROPONIN INCREASED [None]
  - POLLAKIURIA [None]
  - ANAEMIA [None]
  - RENAL IMPAIRMENT [None]
  - FATIGUE [None]
  - DEHYDRATION [None]
  - BLOOD CREATININE INCREASED [None]
  - KIDNEY INFECTION [None]
  - BLOOD LACTIC ACID INCREASED [None]
  - ASCITES [None]
  - URINARY TRACT INFECTION BACTERIAL [None]
  - CHEST PAIN [None]
  - HYPOTENSION [None]
  - COLITIS [None]
  - CLOSTRIDIUM TEST POSITIVE [None]
  - SEPTIC SHOCK [None]
  - SINUS TACHYCARDIA [None]
  - BLOOD UREA INCREASED [None]
  - OXYGEN SATURATION DECREASED [None]
  - MICTURITION URGENCY [None]
